FAERS Safety Report 16855483 (Version 1)
Quarter: 2019Q3

REPORT INFORMATION
  Report Type: Spontaneous
  Country: US (occurrence: US)
  Receive Date: 20190805
  Receipt Date: 20190805
  Transmission Date: 20191005
  Serious: Yes (Hospitalization)
  Sender: FDA-Public Use
  Company Number: None

PATIENT
  Age: 41 Year
  Sex: Male

DRUGS (1)
  1. NIVESTYM [Suspect]
     Active Substance: FILGRASTIM-AAFI
     Indication: NON-HODGKIN^S LYMPHOMA
     Dosage: Q X 5 DAYS SQ
     Route: 058

REACTIONS (1)
  - No adverse event [None]

NARRATIVE: CASE EVENT DATE: 20190728
